FAERS Safety Report 6641582-9 (Version None)
Quarter: 2010Q1

REPORT INFORMATION
  Report Type: 
  Country: None (occurrence: None)
  Receive Date: 20100318
  Receipt Date: 20100311
  Transmission Date: 20100710
  Serious: Yes (Other)
  Sender: FDA-Public Use
  Company Number: EE-ABBOTT-10P-221-0630429-00

PATIENT
  Sex: Female

DRUGS (3)
  1. TEVETEN [Suspect]
     Indication: HYPERTENSION
  2. FOSINOPRIL SODIUM [Concomitant]
     Indication: HYPERTENSION
  3. METFORMIN HYDROCHLORIDE [Concomitant]
     Indication: TYPE 2 DIABETES MELLITUS

REACTIONS (1)
  - CAESAREAN SECTION [None]
